FAERS Safety Report 11350258 (Version 3)
Quarter: 2015Q3

REPORT INFORMATION
  Report Type: Spontaneous
  Country: NL (occurrence: NL)
  Receive Date: 20150807
  Receipt Date: 20150817
  Transmission Date: 20151125
  Serious: Yes (Other)
  Sender: FDA-Public Use
  Company Number: NL-PFIZER INC-2015253096

PATIENT
  Age: 16 Year
  Sex: Female

DRUGS (3)
  1. COFFEIN [Concomitant]
     Active Substance: CAFFEINE
     Indication: HEADACHE
     Dosage: 25 MG, 3X/DAY
     Dates: start: 19731018, end: 19731106
  2. PHENYTOIN SODIUM. [Suspect]
     Active Substance: PHENYTOIN SODIUM
     Indication: HEADACHE
     Dosage: 60 MG, 3X/DAY
     Dates: start: 19731018, end: 19731106
  3. PHENOBARBITAL. [Concomitant]
     Active Substance: PHENOBARBITAL
     Indication: HEADACHE
     Dosage: 60 MG, 3X/DAY
     Dates: start: 19731018, end: 19731106

REACTIONS (4)
  - Aplasia pure red cell [Recovered/Resolved]
  - Drug hypersensitivity [Recovered/Resolved]
  - Toxic skin eruption [Recovered/Resolved]
  - Lymphadenopathy [Recovered/Resolved]
